FAERS Safety Report 12226628 (Version 1)
Quarter: 2016Q1

REPORT INFORMATION
  Report Type: Spontaneous
  Country: US (occurrence: US)
  Receive Date: 20160331
  Receipt Date: 20160331
  Transmission Date: 20160526
  Serious: Yes (Hospitalization)
  Sender: FDA-Public Use
  Company Number: US-MALLINCKRODT-T201601033

PATIENT
  Age: 40 Year
  Sex: Female

DRUGS (7)
  1. GABAPENTIN. [Concomitant]
     Active Substance: GABAPENTIN
  2. LORAZEPAM. [Concomitant]
     Active Substance: LORAZEPAM
  3. GABLOFEN [Suspect]
     Active Substance: BACLOFEN
     Indication: MUSCLE SPASTICITY
     Dosage: 215.8 MCG/DAY AT A CONCENTRATION OF 500MCG/ML
     Route: 037
     Dates: end: 20151217
  4. GABLOFEN [Suspect]
     Active Substance: BACLOFEN
     Indication: MULTIPLE SCLEROSIS
     Dosage: 280.38 MCG/DAY AT A CONCENTRATION OF 2000MCG/ML
     Route: 037
     Dates: start: 20151217
  5. XANAX [Concomitant]
     Active Substance: ALPRAZOLAM
     Dosage: PRN
  6. BACOFEN [Concomitant]
  7. TIZANIDINE. [Concomitant]
     Active Substance: TIZANIDINE

REACTIONS (3)
  - Overdose [Recovered/Resolved]
  - Asthenia [Recovered/Resolved]
  - Confusional state [Recovered/Resolved]

NARRATIVE: CASE EVENT DATE: 20151217
